FAERS Safety Report 7085183-X (Version None)
Quarter: 2010Q4

REPORT INFORMATION
  Report Type: 
  Country: None (occurrence: None)
  Receive Date: 20101105
  Receipt Date: 20101025
  Transmission Date: 20110411
  Serious: Yes (Hospitalization, Other)
  Sender: FDA-Public Use
  Company Number: US-ELI_LILLY_AND_COMPANY-US201008003500

PATIENT
  Sex: Female

DRUGS (13)
  1. FORTEO [Suspect]
     Indication: OSTEOPOROSIS
     Dosage: 20 UG, DAILY (1/D)
     Dates: end: 20091009
  2. FORTEO [Suspect]
     Dosage: 20 UG, DAILY (1/D)
     Dates: start: 20100802
  3. VITAMIN D [Concomitant]
     Dosage: 50000 MG, WEEKLY (1/W)
  4. LISINOPRIL AND HYDROCHLOROTHIAZIDE [Concomitant]
     Dosage: 20 MG, DAILY (1/D)
  5. AMLODIPINE [Concomitant]
     Dosage: 5 MG, UNK
  6. HYDROXYCHLOROQUINE [Concomitant]
  7. GEMFIBROZIL [Concomitant]
     Dosage: 600 MG, 2/D
  8. PLAQUENIL [Concomitant]
     Dosage: 400 D/F, DAILY (1/D)
  9. CALTRATE +D [Concomitant]
     Dosage: 600 D/F, 2/D
  10. PREDNISONE [Concomitant]
     Dosage: 3 D/F, DAILY (1/D)
  11. VICODIN [Concomitant]
     Dosage: 1 D/F, DAILY (1/D)
  12. TYLENOL (CAPLET) [Concomitant]
     Dosage: 1 D/F, AS NEEDED
  13. MTX [Concomitant]

REACTIONS (6)
  - BONE DENSITY DECREASED [None]
  - DEVICE BREAKAGE [None]
  - FALL [None]
  - HIP FRACTURE [None]
  - HYPOACUSIS [None]
  - WRIST FRACTURE [None]
